FAERS Safety Report 8489096-8 (Version None)
Quarter: 2012Q3

REPORT INFORMATION
  Report Type: 
  Country: None (occurrence: None)
  Receive Date: 20120705
  Receipt Date: 20120625
  Transmission Date: 20120928
  Serious: Yes (Other)
  Sender: FDA-Public Use
  Company Number: JP-VERTEX PHARMACEUTICALS INC.-AE-2012-009610

PATIENT
  Age: 62 Year
  Sex: Male

DRUGS (14)
  1. LOXONIN [Concomitant]
     Route: 048
     Dates: start: 20120315, end: 20120331
  2. MUCOSTA [Concomitant]
     Route: 048
     Dates: start: 20120518
  3. REBETOL [Concomitant]
     Indication: HEPATITIS C
     Route: 048
     Dates: start: 20120316, end: 20120405
  4. PEG-INTRON [Concomitant]
     Route: 048
     Dates: start: 20120406
  5. ALLOPURINOL [Concomitant]
     Route: 048
     Dates: start: 20120309, end: 20120318
  6. TELAVIC (TELAPREVIR) [Suspect]
     Route: 048
     Dates: start: 20120502, end: 20120513
  7. MUCOSTA [Concomitant]
     Route: 048
     Dates: start: 20120315, end: 20120331
  8. REBETOL [Concomitant]
     Route: 048
     Dates: start: 20120511
  9. ALLOPURINOL [Concomitant]
     Route: 048
     Dates: start: 20120601
  10. TELAVIC (TELAPREVIR) [Suspect]
     Route: 048
     Dates: start: 20120514, end: 20120514
  11. REBETOL [Concomitant]
     Route: 048
     Dates: start: 20120406, end: 20120510
  12. PEG-INTRON [Concomitant]
     Indication: HEPATITIS C
     Route: 048
     Dates: start: 20120316, end: 20120330
  13. MERISLON [Concomitant]
     Route: 048
  14. TELAVIC (TELAPREVIR) [Suspect]
     Indication: HEPATITIS C
     Route: 048
     Dates: start: 20120316, end: 20120501

REACTIONS (2)
  - RASH [None]
  - OFF LABEL USE [None]
